FAERS Safety Report 17405022 (Version 1)
Quarter: 2020Q1

REPORT INFORMATION
  Report Type: Spontaneous
  Country: FR (occurrence: FR)
  Receive Date: 20200212
  Receipt Date: 20200212
  Transmission Date: 20200409
  Serious: Yes (Hospitalization, Other)
  Sender: FDA-Public Use
  Company Number: FR-AUROBINDO-AUR-APL-2017-47640

PATIENT
  Age: 70 Year
  Sex: Female
  Weight: 43 kg

DRUGS (10)
  1. AVASTIN [Suspect]
     Active Substance: BEVACIZUMAB
     Indication: COLORECTAL CANCER METASTATIC
     Dosage: 240 MILLIGRAM, CYCLICAL
     Route: 042
     Dates: start: 20170912
  2. FOLINIC ACID [Suspect]
     Active Substance: LEUCOVORIN
     Indication: COLORECTAL CANCER METASTATIC
     Dosage: 180 MILLIGRAM
     Route: 065
     Dates: start: 20170926
  3. IRINOTECAN [Suspect]
     Active Substance: IRINOTECAN
     Indication: COLORECTAL CANCER METASTATIC
     Dosage: 260 MILLIGRAM, CYCLICAL (LAST CYCLE ON 24/OCT/2017)
     Route: 065
     Dates: start: 20170912
  4. 5 FLUORO URACIL [Suspect]
     Active Substance: FLUOROURACIL
     Indication: COLORECTAL CANCER METASTATIC
     Dosage: 3400 MILLIGRAM, CYCLICAL
     Route: 041
     Dates: start: 20171024
  5. IRINOTECAN [Suspect]
     Active Substance: IRINOTECAN
     Dosage: 215.33 MILLIGRAM
     Route: 065
     Dates: start: 20170926
  6. 5 FLUORO URACIL [Suspect]
     Active Substance: FLUOROURACIL
     Dosage: 560 MILLIGRAM, CYCLICAL
     Route: 040
     Dates: start: 20171024
  7. OXALIPLATIN. [Suspect]
     Active Substance: OXALIPLATIN
     Indication: COLORECTAL CANCER METASTATIC
     Dosage: 147.9 MILLIGRAM
     Route: 065
     Dates: start: 20170926
  8. 5 FLUORO URACIL [Suspect]
     Active Substance: FLUOROURACIL
     Dosage: 5568 MILLIGRAM
     Route: 040
     Dates: start: 20170926
  9. ELVORINE [Suspect]
     Active Substance: LEUCOVORIN CALCIUM
     Indication: COLORECTAL CANCER METASTATIC
     Dosage: 284 MILLIGRAM, CYCLICAL
     Route: 065
     Dates: start: 20170912
  10. AVASTIN [Suspect]
     Active Substance: BEVACIZUMAB
     Dosage: 365 MILLIGRAM
     Route: 042
     Dates: start: 20170926

REACTIONS (6)
  - Intestinal obstruction [Recovered/Resolved]
  - Epistaxis [Unknown]
  - Vomiting [Recovered/Resolved]
  - Abdominal pain [Recovered/Resolved]
  - Pulmonary embolism [Not Recovered/Not Resolved]
  - Constipation [Recovered/Resolved]

NARRATIVE: CASE EVENT DATE: 20171024
